FAERS Safety Report 12412546 (Version 3)
Quarter: 2016Q3

REPORT INFORMATION
  Report Type: Report from Study
  Country: NZ (occurrence: NZ)
  Receive Date: 20160527
  Receipt Date: 20160721
  Transmission Date: 20161109
  Serious: Yes (Hospitalization, Other)
  Sender: FDA-Public Use
  Company Number: NZ-ABBVIE-16P-118-1636728-00

PATIENT
  Sex: Female

DRUGS (6)
  1. PAROXETINE. [Concomitant]
     Active Substance: PAROXETINE
     Indication: PRODUCT USED FOR UNKNOWN INDICATION
  2. NORTRIPTYLINE [Concomitant]
     Active Substance: NORTRIPTYLINE
     Indication: PRODUCT USED FOR UNKNOWN INDICATION
     Dosage: NOCTE
  3. RIBAVIRIN. [Suspect]
     Active Substance: RIBAVIRIN
     Indication: CHRONIC HEPATITIS C
     Route: 065
     Dates: start: 2016, end: 2016
  4. TRAMADOL. [Interacting]
     Active Substance: TRAMADOL
     Indication: BACK PAIN
     Dosage: BD
     Route: 065
  5. VIEKIRA PAK [Suspect]
     Active Substance: DASABUVIR\OMBITASVIR\PARITAPREVIR\RITONAVIR
     Indication: CHRONIC HEPATITIS C
     Route: 048
     Dates: start: 20160426, end: 20160516
  6. CODEINE [Concomitant]
     Active Substance: CODEINE
     Indication: PRODUCT USED FOR UNKNOWN INDICATION
     Dosage: TDS

REACTIONS (11)
  - Somnolence [Recovering/Resolving]
  - Hallucination [Recovering/Resolving]
  - Hepatic failure [Recovering/Resolving]
  - Blood bilirubin increased [Recovering/Resolving]
  - Adverse drug reaction [Unknown]
  - International normalised ratio increased [Recovering/Resolving]
  - Hypophagia [Recovering/Resolving]
  - Gastrointestinal disorder [Unknown]
  - Nausea [Recovering/Resolving]
  - Insomnia [Recovering/Resolving]
  - Drug interaction [Unknown]
